FAERS Safety Report 6444681-X (Version None)
Quarter: 2009Q4

REPORT INFORMATION
  Report Type: 
  Country: None (occurrence: None)
  Receive Date: 20091110
  Receipt Date: 20090818
  Transmission Date: 20100525
  Serious: No
  Sender: FDA-Public Use
  Company Number: 1000008268

PATIENT
  Age: 63 Year
  Sex: Male

DRUGS (4)
  1. SAVELLA [Suspect]
     Indication: NEUROPATHY PERIPHERAL
     Dosage: SEE IMAGE
     Route: 048
     Dates: start: 20090804, end: 20090804
  2. SAVELLA [Suspect]
     Indication: NEUROPATHY PERIPHERAL
     Dosage: SEE IMAGE
     Route: 048
     Dates: start: 20090805, end: 20090806
  3. SAVELLA [Suspect]
     Indication: NEUROPATHY PERIPHERAL
     Dosage: SEE IMAGE
     Route: 048
     Dates: start: 20090807, end: 20090810
  4. SAVELLA [Suspect]
     Indication: NEUROPATHY PERIPHERAL
     Dosage: SEE IMAGE
     Route: 048
     Dates: start: 20090811

REACTIONS (1)
  - HAEMATOCHEZIA [None]
